FAERS Safety Report 20472604 (Version 1)
Quarter: 2022Q1

REPORT INFORMATION
  Report Type: Spontaneous
  Country: FR (occurrence: FR)
  Receive Date: 20220215
  Receipt Date: 20220215
  Transmission Date: 20220424
  Serious: Yes (Hospitalization)
  Sender: FDA-Public Use
  Company Number: FR-SUN PHARMACEUTICAL INDUSTRIES LTD-2022RR-326759

PATIENT
  Age: 50 Year
  Sex: Female

DRUGS (4)
  1. OLANZAPINE [Interacting]
     Active Substance: OLANZAPINE
     Indication: Schizophrenia
     Dosage: 20 MILLIGRAM, DAILY
     Route: 048
     Dates: end: 20211105
  2. LOXAPINE [Interacting]
     Active Substance: LOXAPINE
     Indication: Schizophrenia
     Dosage: 75 MILLIGRAM, DAILY
     Route: 048
     Dates: start: 20211103, end: 20211105
  3. LORAZEPAM [Concomitant]
     Active Substance: LORAZEPAM
     Indication: Product used for unknown indication
     Dosage: 3 MILLIGRAM, DAILY
     Route: 048
  4. TRANSIPEG [Concomitant]
     Indication: Product used for unknown indication
     Dosage: 2 DOSAGE FORM, DAILY
     Route: 048

REACTIONS (2)
  - Neuroleptic malignant syndrome [Recovered/Resolved]
  - Drug interaction [Recovered/Resolved]

NARRATIVE: CASE EVENT DATE: 20211105
